FAERS Safety Report 24228895 (Version 2)
Quarter: 2024Q4

REPORT INFORMATION
  Report Type: Report from Study
  Country: CA (occurrence: CA)
  Receive Date: 20240820
  Receipt Date: 20241007
  Transmission Date: 20250115
  Serious: Yes (Other)
  Sender: SANDOZ
  Company Number: CA-SANDOZ-SDZ2023CA020149

PATIENT
  Sex: Female

DRUGS (1)
  1. ERELZI [Suspect]
     Active Substance: ETANERCEPT-SZZS
     Indication: Rheumatoid arthritis
     Dosage: 50 MG, QW
     Route: 058
     Dates: start: 20211119

REACTIONS (9)
  - Hip fracture [Unknown]
  - Fall [Unknown]
  - Pain in extremity [Unknown]
  - Arthralgia [Unknown]
  - Movement disorder [Unknown]
  - Mass [Recovered/Resolved]
  - Muscular weakness [Unknown]
  - General physical health deterioration [Unknown]
  - Therapeutic product effect incomplete [Unknown]
